FAERS Safety Report 14193245 (Version 2)
Quarter: 2017Q4

REPORT INFORMATION
  Report Type: Spontaneous
  Country: US (occurrence: US)
  Receive Date: 20171115
  Receipt Date: 20171221
  Transmission Date: 20180321
  Serious: Yes (Other)
  Sender: FDA-Public Use
  Company Number: US-SEBELA IRELAND LIMITED-2017SEB00465

PATIENT
  Sex: Female
  Weight: 88.89 kg

DRUGS (4)
  1. PRAMOSONE [Suspect]
     Active Substance: HYDROCORTISONE ACETATE\PRAMOXINE HYDROCHLORIDE
     Indication: PSORIASIS
     Dosage: UNK UNK, 2X/DAY ON LOWER ABDOMEN BETWEEN BELLY BUTTON AND PUBIC AREA AND ON HER ^BACKSIDE^
     Route: 061
  2. VERAPAMIL [Concomitant]
     Active Substance: VERAPAMIL HYDROCHLORIDE
     Dosage: UNK UNK, 1X/DAY
  3. KETOCONAZOLE. [Suspect]
     Active Substance: KETOCONAZOLE
     Indication: PSORIASIS
     Dosage: UNK, 2X/DAY ON LOWER ABDOMEN BETWEEN BELLY BUTTON AND PUBIC AREA AND ON HER ^BACKSIDE^
     Route: 061
  4. PEPCID [Concomitant]
     Active Substance: FAMOTIDINE
     Dosage: UNK, 2X/DAY

REACTIONS (6)
  - Cataract [Unknown]
  - Vision blurred [Not Recovered/Not Resolved]
  - Fatigue [Not Recovered/Not Resolved]
  - Insomnia [Not Recovered/Not Resolved]
  - Corneal operation [Unknown]
  - Dry mouth [Not Recovered/Not Resolved]

NARRATIVE: CASE EVENT DATE: 2017
